FAERS Safety Report 8852455 (Version 1)
Quarter: 2012Q4

REPORT INFORMATION
  Report Type: Spontaneous
  Country: US (occurrence: None)
  Receive Date: 20121017
  Receipt Date: 20121017
  Transmission Date: 20130627
  Serious: Yes (Other)
  Sender: FDA-Public Use
  Company Number: 2012MA012123

PATIENT
  Age: 17 Year
  Sex: Female

DRUGS (3)
  1. FEVERALL [Suspect]
     Indication: MIGRAINE HEADACHE
  2. IBUPROFEN [Suspect]
     Indication: MIGRAINE HEADACHE
  3. IVIG [Concomitant]

REACTIONS (1)
  - Drug eruption [None]
